FAERS Safety Report 11745505 (Version 1)
Quarter: 2015Q4

REPORT INFORMATION
  Report Type: Spontaneous
  Country: US (occurrence: None)
  Receive Date: 20151116
  Receipt Date: 20151116
  Transmission Date: 20160304
  Serious: Yes (Disabling)
  Sender: FDA-Public Use
  Company Number: None

PATIENT
  Age: 36 Year
  Sex: Female
  Weight: 54.43 kg

DRUGS (13)
  1. CALCIUM [Concomitant]
     Active Substance: CALCIUM
  2. XANAX [Concomitant]
     Active Substance: ALPRAZOLAM
  3. METHYL B12 [Concomitant]
  4. MAGNESIUM [Concomitant]
     Active Substance: MAGNESIUM
  5. DILAUDID [Concomitant]
     Active Substance: HYDROMORPHONE HYDROCHLORIDE
  6. AMBIEN [Concomitant]
     Active Substance: ZOLPIDEM TARTRATE
  7. AVELOX [Suspect]
     Active Substance: MOXIFLOXACIN HYDROCHLORIDE
     Indication: UPPER RESPIRATORY TRACT INFECTION
     Dosage: 1 PILL
     Route: 048
  8. METHYLFOLATE [Concomitant]
  9. GLUCOSAMINE/CONDROITIN [Concomitant]
  10. VIT.E [Concomitant]
  11. FLAXSEED [Concomitant]
     Active Substance: FLAX SEED
  12. PROZAC [Concomitant]
     Active Substance: FLUOXETINE HYDROCHLORIDE
  13. SOMA [Concomitant]
     Active Substance: CARISOPRODOL

REACTIONS (4)
  - Tendon pain [None]
  - Myalgia [None]
  - Asthenia [None]
  - Neuropathy peripheral [None]

NARRATIVE: CASE EVENT DATE: 20010810
